FAERS Safety Report 6822827-9 (Version None)
Quarter: 2010Q3

REPORT INFORMATION
  Report Type: 
  Country: None (occurrence: None)
  Receive Date: 20100708
  Receipt Date: 20100701
  Transmission Date: 20110219
  Serious: Yes (Hospitalization, Other)
  Sender: FDA-Public Use
  Company Number: US-JNJFOC-20100400639

PATIENT
  Sex: Female

DRUGS (2)
  1. LEVAQUIN [Suspect]
     Indication: DIVERTICULITIS
     Route: 048
  2. STEROIDS NOS [Suspect]
     Indication: ANTIINFLAMMATORY THERAPY
     Route: 065

REACTIONS (4)
  - LIGAMENT RUPTURE [None]
  - MENISCUS LESION [None]
  - MUSCLE RUPTURE [None]
  - TENDON RUPTURE [None]
